FAERS Safety Report 18278359 (Version 3)
Quarter: 2021Q1

REPORT INFORMATION
  Report Type: Report from Study
  Country: CL (occurrence: CL)
  Receive Date: 20200917
  Receipt Date: 20210225
  Transmission Date: 20210419
  Serious: No
  Sender: FDA-Public Use
  Company Number: NVSC2020CL226798

PATIENT
  Age: 59 Year
  Sex: Male

DRUGS (4)
  1. COSENTYX [Suspect]
     Active Substance: SECUKINUMAB
     Dosage: 300 MG, UNKNOWN
     Route: 065
     Dates: end: 20210203
  2. COSENTYX [Suspect]
     Active Substance: SECUKINUMAB
     Dosage: UNK
     Route: 065
     Dates: start: 20200904
  3. COSENTYX [Suspect]
     Active Substance: SECUKINUMAB
     Dosage: 300 MG, UNKNOWN
     Route: 065
     Dates: start: 20210104
  4. COSENTYX [Suspect]
     Active Substance: SECUKINUMAB
     Indication: PSORIATIC ARTHROPATHY
     Dosage: 300 MG, QMO
     Route: 058
     Dates: start: 20200708

REACTIONS (11)
  - Hypokinesia [Unknown]
  - Heat exhaustion [Not Recovered/Not Resolved]
  - Blepharitis [Not Recovered/Not Resolved]
  - Movement disorder [Unknown]
  - Erythema of eyelid [Not Recovered/Not Resolved]
  - Fatigue [Unknown]
  - Arthralgia [Unknown]
  - Pain [Unknown]
  - Swelling of eyelid [Not Recovered/Not Resolved]
  - Bone pain [Not Recovered/Not Resolved]
  - Pain in extremity [Unknown]

NARRATIVE: CASE EVENT DATE: 20200805
